FAERS Safety Report 25003111 (Version 1)
Quarter: 2025Q1

REPORT INFORMATION
  Report Type: Spontaneous
  Country: US (occurrence: US)
  Receive Date: 20250224
  Receipt Date: 20250224
  Transmission Date: 20250409
  Serious: Yes (Death, Other)
  Sender: BRISTOL-MYERS SQUIBB COMPANY
  Company Number: US-BRISTOL-MYERS SQUIBB COMPANY-2025-024049

PATIENT
  Age: 59 Year

DRUGS (1)
  1. OPDUALAG [Suspect]
     Active Substance: NIVOLUMAB\RELATLIMAB-RMBW
     Indication: Product used for unknown indication
     Dosage: DOSE: 480/160MG; STRENGTH: 240/80MG
     Route: 042
     Dates: end: 20241121

REACTIONS (1)
  - Death [Fatal]

NARRATIVE: CASE EVENT DATE: 20250120
